FAERS Safety Report 5971438-6 (Version None)
Quarter: 2008Q4

REPORT INFORMATION
  Report Type: 
  Country: None (occurrence: None)
  Receive Date: 20081201
  Receipt Date: 20081120
  Transmission Date: 20090506
  Serious: Yes (Hospitalization)
  Sender: FDA-Public Use
  Company Number: FR-SP-2008-03776

PATIENT
  Age: 61 Year
  Sex: Male

DRUGS (2)
  1. IMMUCYST [Suspect]
     Indication: CARCINOMA IN SITU
     Route: 043
     Dates: start: 20080527
  2. IMMUCYST [Suspect]
     Route: 043
     Dates: start: 20080527

REACTIONS (3)
  - GRANULOMA [None]
  - PAIN [None]
  - URETHRITIS [None]
